FAERS Safety Report 8421064-4 (Version None)
Quarter: 2012Q2

REPORT INFORMATION
  Report Type: 
  Country: None (occurrence: None)
  Receive Date: 20120608
  Receipt Date: 20120530
  Transmission Date: 20120825
  Serious: Yes (Hospitalization)
  Sender: FDA-Public Use
  Company Number: DE-US-EMD SERONO, INC.-7136831

PATIENT
  Age: 74 Year
  Sex: Female

DRUGS (2)
  1. REBIF [Suspect]
     Indication: MULTIPLE SCLEROSIS
     Route: 058
     Dates: start: 20070101
  2. SLEEPING TABLETS [Concomitant]
     Indication: INSOMNIA
     Route: 048

REACTIONS (7)
  - EPISTAXIS [None]
  - INSOMNIA [None]
  - BLADDER DISORDER [None]
  - HYPOAESTHESIA [None]
  - GASTROINTESTINAL HYPOMOTILITY [None]
  - RESTLESSNESS [None]
  - DYSPHONIA [None]
